FAERS Safety Report 15484165 (Version 1)
Quarter: 2018Q4

REPORT INFORMATION
  Report Type: Report from Study
  Country: US (occurrence: US)
  Receive Date: 20181010
  Receipt Date: 20181010
  Transmission Date: 20190205
  Serious: Yes (Hospitalization, Other)
  Sender: FDA-Public Use
  Company Number: US-BAYER-2018-168902

PATIENT
  Age: 63 Year
  Sex: Female

DRUGS (2)
  1. STIVARGA [Suspect]
     Active Substance: REGORAFENIB
     Indication: HEPATOCELLULAR CARCINOMA
     Dosage: 120 MG DAILY X 21 DAYS OFF X 7 DAYS
     Route: 048
     Dates: start: 2018, end: 20180908
  2. STIVARGA [Suspect]
     Active Substance: REGORAFENIB
     Indication: HEPATOCELLULAR CARCINOMA
     Dosage: 160 MG DAILY
     Route: 048
     Dates: start: 20180822, end: 2018

REACTIONS (19)
  - Hospitalisation [None]
  - Hyperhidrosis [None]
  - Dehydration [Recovering/Resolving]
  - Vomiting [Recovering/Resolving]
  - Adverse drug reaction [None]
  - Decreased appetite [None]
  - Nausea [Recovering/Resolving]
  - Increased upper airway secretion [None]
  - Burning sensation [None]
  - Diarrhoea [None]
  - Stomatitis [Recovering/Resolving]
  - Hypophagia [Recovering/Resolving]
  - Chills [None]
  - Therapeutic product ineffective [None]
  - Haemorrhage [None]
  - Fatigue [Recovering/Resolving]
  - Oropharyngeal pain [None]
  - Salivary hypersecretion [Not Recovered/Not Resolved]
  - Decreased activity [Recovering/Resolving]

NARRATIVE: CASE EVENT DATE: 2018
